FAERS Safety Report 7983734-1 (Version None)
Quarter: 2011Q4

REPORT INFORMATION
  Report Type: 
  Country: None (occurrence: None)
  Receive Date: 20111215
  Receipt Date: 20111206
  Transmission Date: 20120403
  Serious: Yes (Hospitalization)
  Sender: FDA-Public Use
  Company Number: DE-ROCHE-1010769

PATIENT
  Age: 65 Year
  Sex: Female
  Weight: 51.5 kg

DRUGS (4)
  1. TRAMADOL HCL [Concomitant]
     Dosage: 75 DROPS DAILY
     Dates: start: 20110725
  2. NOVALGIN [Concomitant]
     Dosage: 90 DROPS DAILY
     Dates: start: 20110725
  3. TRAMAL LONG [Concomitant]
     Dosage: UNKNOWN
     Dates: start: 20110725
  4. VEMURAFENIB [Suspect]
     Indication: METASTATIC MALIGNANT MELANOMA
     Dosage: LAST DOSE PRIOR TO SAE: 17/OCT/2011
     Route: 048
     Dates: start: 20110919

REACTIONS (1)
  - MALIGNANT MELANOMA [None]
